FAERS Safety Report 8580309-0 (Version None)
Quarter: 2012Q3

REPORT INFORMATION
  Report Type: 
  Country: None (occurrence: None)
  Receive Date: 20120808
  Receipt Date: 20120803
  Transmission Date: 20120928
  Serious: Yes (Other)
  Sender: FDA-Public Use
  Company Number: US-PFIZER INC-2012146694

PATIENT
  Age: 83 Year
  Sex: Male
  Weight: 61 kg

DRUGS (2)
  1. LYRICA [Suspect]
     Indication: NEUROPATHY PERIPHERAL
     Dosage: 50 MG, DAILY
     Route: 048
     Dates: start: 20120615, end: 20120702
  2. DONEPEZIL [Concomitant]
     Indication: DEMENTIA
     Dosage: 10 MG, 2X/DAY

REACTIONS (7)
  - DISTURBANCE IN ATTENTION [None]
  - DISORIENTATION [None]
  - DIZZINESS [None]
  - CONFUSIONAL STATE [None]
  - APHASIA [None]
  - ACTIVITIES OF DAILY LIVING IMPAIRED [None]
  - ASTHENIA [None]
